FAERS Safety Report 14640574 (Version 6)
Quarter: 2018Q2

REPORT INFORMATION
  Report Type: Spontaneous
  Country: JP (occurrence: JP)
  Receive Date: 20180315
  Receipt Date: 20180607
  Transmission Date: 20180711
  Serious: Yes (Hospitalization, Disabling, Other)
  Sender: FDA-Public Use
  Company Number: JP-GLAXOSMITHKLINE-JP2018JPN032437

PATIENT
  Age: 69 Year
  Sex: Female
  Weight: 59 kg

DRUGS (16)
  1. MEPOLIZUMAB [Suspect]
     Active Substance: MEPOLIZUMAB
     Dosage: 100 MG, UNK
     Route: 058
  2. XALATAN [Concomitant]
     Active Substance: LATANOPROST
     Dosage: UNK, QD
  3. AZOPT [Concomitant]
     Active Substance: BRINZOLAMIDE
     Dosage: UNK, BID
  4. PREDONINE [Suspect]
     Active Substance: PREDNISOLONE
     Indication: ASTHMA
     Dosage: 7 MG, QD
     Route: 048
  5. SINGULAIR TABLETS [Concomitant]
     Indication: ASTHMA
     Dosage: 10 MG, QD
  6. TAKEPRON OD TABLETS [Concomitant]
     Dosage: 15 MG, QD
  7. MEPOLIZUMAB [Suspect]
     Active Substance: MEPOLIZUMAB
     Dosage: 100 MG, UNK
     Route: 058
     Dates: start: 20180221, end: 20180221
  8. SYMBICORT [Concomitant]
     Active Substance: BUDESONIDE\FORMOTEROL FUMARATE DIHYDRATE
     Indication: ASTHMA
     Dosage: 4 DF, BID
  9. MEPOLIZUMAB [Suspect]
     Active Substance: MEPOLIZUMAB
     Indication: ASTHMA
     Dosage: 100 MG, UNK
     Route: 058
     Dates: start: 20170809, end: 20170809
  10. MEPOLIZUMAB [Suspect]
     Active Substance: MEPOLIZUMAB
     Dosage: 100 MG, UNK
     Route: 058
     Dates: start: 20171004, end: 20171004
  11. MEPOLIZUMAB [Suspect]
     Active Substance: MEPOLIZUMAB
     Dosage: 100 MG, UNK
     Route: 058
     Dates: start: 20180124, end: 20180124
  12. MEPOLIZUMAB [Suspect]
     Active Substance: MEPOLIZUMAB
     Dosage: 100 MG, UNK
     Route: 058
     Dates: start: 2017, end: 2017
  13. MEPOLIZUMAB [Suspect]
     Active Substance: MEPOLIZUMAB
     Dosage: 100 MG, UNK
     Route: 058
     Dates: start: 20171101, end: 20171101
  14. MUCOSTA OPHTHALMIC SUSPENSION UD [Concomitant]
     Dosage: UNK, QID
  15. MEPOLIZUMAB [Suspect]
     Active Substance: MEPOLIZUMAB
     Dosage: 100 MG, UNK
     Route: 058
  16. CARBOCISTEINE TABLETS [Concomitant]
     Active Substance: CARBOCYSTEINE
     Indication: ASTHMA
     Dosage: 500 MG, BID

REACTIONS (16)
  - Peripheral swelling [Unknown]
  - Pain [Unknown]
  - Osteomyelitis [Unknown]
  - Gangrene [Recovered/Resolved with Sequelae]
  - Nail disorder [Unknown]
  - Erythema [Unknown]
  - Skin exfoliation [Unknown]
  - Paronychia [Unknown]
  - Localised infection [Unknown]
  - Cellulitis [Unknown]
  - Bursal fluid accumulation [Unknown]
  - Extremity necrosis [Recovered/Resolved with Sequelae]
  - Skin discolouration [Unknown]
  - Joint swelling [Recovering/Resolving]
  - Abscess limb [Unknown]
  - Foreign body [Unknown]

NARRATIVE: CASE EVENT DATE: 201708
